FAERS Safety Report 23608740 (Version 1)
Quarter: 2024Q1

REPORT INFORMATION
  Report Type: Spontaneous
  Country: US (occurrence: US)
  Receive Date: 20240308
  Receipt Date: 20240308
  Transmission Date: 20240409
  Serious: Yes (Other)
  Sender: FDA-Public Use
  Company Number: US-BIOVITRUM-2024-US-003804

PATIENT
  Age: 1 Year
  Sex: Male
  Weight: 11.29 kg

DRUGS (11)
  1. SYNAGIS [Suspect]
     Active Substance: PALIVIZUMAB
     Indication: DiGeorge^s syndrome
     Dosage: ONCE A MONTH
     Route: 030
     Dates: start: 20221110
  2. SYNAGIS [Suspect]
     Active Substance: PALIVIZUMAB
     Indication: Premature baby
  3. SYNAGIS [Suspect]
     Active Substance: PALIVIZUMAB
     Indication: Low birth weight baby
  4. SYNAGIS [Suspect]
     Active Substance: PALIVIZUMAB
     Indication: Ventricular septal defect
  5. SYNAGIS [Suspect]
     Active Substance: PALIVIZUMAB
     Indication: Right aortic arch
  6. SYNAGIS [Suspect]
     Active Substance: PALIVIZUMAB
     Indication: Congenital pulmonary artery anomaly
  7. SYNAGIS [Suspect]
     Active Substance: PALIVIZUMAB
     Indication: Pulmonary artery stenosis
  8. SYNAGIS [Suspect]
     Active Substance: PALIVIZUMAB
     Indication: Asthma
  9. MIRALAX 17G/DOSE POWDER [Concomitant]
     Indication: Product used for unknown indication
  10. DIGOXIN 50 MCG/ML SOLUTION [Concomitant]
     Indication: Product used for unknown indication
  11. LASIX 20 MG TABLET [Concomitant]
     Indication: Product used for unknown indication

REACTIONS (1)
  - Pneumonia [Unknown]

NARRATIVE: CASE EVENT DATE: 20240101
